FAERS Safety Report 12610454 (Version 1)
Quarter: 2016Q3

REPORT INFORMATION
  Report Type: Spontaneous
  Country: US (occurrence: US)
  Receive Date: 20160801
  Receipt Date: 20160801
  Transmission Date: 20161109
  Serious: No
  Sender: FDA-Public Use
  Company Number: US-TEVA-675263ACC

PATIENT
  Sex: Female

DRUGS (1)
  1. TAKE ACTION [Suspect]
     Active Substance: LEVONORGESTREL
     Indication: POST COITAL CONTRACEPTION
     Dates: start: 20160706, end: 20160706

REACTIONS (3)
  - Constipation [Not Recovered/Not Resolved]
  - Urine output decreased [Unknown]
  - Micturition urgency [Unknown]

NARRATIVE: CASE EVENT DATE: 20160706
